FAERS Safety Report 19143772 (Version 10)
Quarter: 2022Q4

REPORT INFORMATION
  Report Type: Report from Study
  Country: ES (occurrence: ES)
  Receive Date: 20210415
  Receipt Date: 20221128
  Transmission Date: 20230113
  Serious: Yes (Hospitalization, Other)
  Sender: FDA-Public Use
  Company Number: ES-BRISTOL-MYERS SQUIBB COMPANY-BMS-2021-034883

PATIENT
  Age: 85 Year
  Sex: Male
  Weight: 68 kg

DRUGS (7)
  1. PACLITAXEL [Suspect]
     Active Substance: PACLITAXEL
     Indication: Non-small cell lung cancer
     Dosage: ON 08-APR-2021, (CYCLE 1, DAY 1) PACLITAXEL WAS STARTED AT 1700 HOURS AND COMPLETED AT 2000 HOURS.?O
     Route: 042
     Dates: start: 20210408
  2. CARBOPLATIN [Suspect]
     Active Substance: CARBOPLATIN
     Indication: Non-small cell lung cancer
     Dosage: ON 08-APR-2021, (CYCLE 1, DAY 1) CARBOPLATIN WAS STARTED AT 2010 HOURS. ?ON 07-JUN-2021, THE PATIENT
     Route: 042
     Dates: start: 20210408
  3. IPILIMUMAB [Suspect]
     Active Substance: IPILIMUMAB
     Indication: Non-small cell lung cancer
     Route: 042
     Dates: start: 20210825, end: 20210825
  4. RANITIDINE [Concomitant]
     Active Substance: RANITIDINE
     Indication: Product used for unknown indication
     Dosage: EVERY 3 WEEKS; Q3S?ONGOING
     Route: 042
     Dates: start: 20210408
  5. DEXCHLORPHENIRAMINE [Concomitant]
     Active Substance: DEXCHLORPHENIRAMINE
     Indication: Product used for unknown indication
     Dosage: EVERY 3 WEEKS; Q3S?ONGOING
     Route: 042
     Dates: start: 20210408
  6. PALONOSETRON [Concomitant]
     Active Substance: PALONOSETRON
     Indication: Product used for unknown indication
     Route: 048
     Dates: start: 20210408, end: 20210408
  7. NETUPITANT\PALONOSETRON [Concomitant]
     Active Substance: NETUPITANT\PALONOSETRON
     Indication: Product used for unknown indication
     Dosage: DOSE = 1 UNITS NOS?EVERY 3 WEEKS; Q3S?ONGOING
     Route: 048
     Dates: start: 20210408

REACTIONS (1)
  - Hypoxia [Recovered/Resolved]

NARRATIVE: CASE EVENT DATE: 20210408
